FAERS Safety Report 19108995 (Version 2)
Quarter: 2021Q2

REPORT INFORMATION
  Report Type: Spontaneous
  Country: GE (occurrence: GE)
  Receive Date: 20210408
  Receipt Date: 20210420
  Transmission Date: 20210717
  Serious: Yes (Other)
  Sender: FDA-Public Use
  Company Number: GE-GLAXOSMITHKLINE-GE2021GSK077090

PATIENT
  Age: 23 Year
  Sex: Male

DRUGS (4)
  1. MEFLOQUINE [Concomitant]
     Active Substance: MEFLOQUINE
     Indication: MALARIA RECRUDESCENCE
     Dosage: INITIAL THREE TABLETS
     Route: 048
  2. MEFLOQUINE [Concomitant]
     Active Substance: MEFLOQUINE
     Dosage: TWO TABLETS AFTER 8 HOURS
     Route: 048
  3. MEFLOQUINE [Concomitant]
     Active Substance: MEFLOQUINE
     Dosage: ONE TABLET AFTER 24 HOURS
     Route: 048
  4. ATOVAQUONE + PROGUANIL HYDROCHLORIDE [Suspect]
     Active Substance: ATOVAQUONE\PROGUANIL HYDROCHLORIDE
     Indication: MALARIA RECRUDESCENCE
     Dosage: 1,000 MG/400 MG QD
     Route: 048

REACTIONS (2)
  - Pathogen resistance [Unknown]
  - Treatment failure [Unknown]
